APPROVED DRUG PRODUCT: ALENDRONATE SODIUM
Active Ingredient: ALENDRONATE SODIUM
Strength: EQ 5MG BASE
Dosage Form/Route: TABLET;ORAL
Application: A077982 | Product #001
Applicant: APOTEX INC
Approved: Aug 4, 2008 | RLD: No | RS: No | Type: DISCN